FAERS Safety Report 6327956-4 (Version None)
Quarter: 2009Q3

REPORT INFORMATION
  Report Type: 
  Country: None (occurrence: None)
  Receive Date: 20090825
  Receipt Date: 20080827
  Transmission Date: 20100115
  Serious: No
  Sender: FDA-Public Use
  Company Number: US-ABBOTT-08P-163-0468456-00

PATIENT
  Sex: Female
  Weight: 95.794 kg

DRUGS (16)
  1. LEVOTHYROXINE SODIUM [Suspect]
     Indication: HYPOTHYROIDISM
     Route: 048
     Dates: end: 20060101
  2. LEVOTHYROXINE SODIUM [Suspect]
     Route: 048
     Dates: start: 20060101, end: 20070101
  3. LEVOTHYROXINE SODIUM [Suspect]
     Route: 048
     Dates: start: 20070101, end: 20070101
  4. LEVOTHYROXINE SODIUM [Suspect]
     Route: 048
     Dates: start: 20070101, end: 20070101
  5. LEVOTHYROXINE SODIUM [Suspect]
     Route: 048
     Dates: start: 20070101, end: 20080101
  6. VITAMINS AND MINERALS [Concomitant]
     Indication: VITAMIN SUPPLEMENTATION
     Route: 048
  7. CANDESARTAN CILEXETIL [Concomitant]
     Indication: HYPERTENSION
     Route: 048
  8. PIOGLITAZONE [Concomitant]
     Indication: DIABETES MELLITUS
     Route: 048
     Dates: start: 20060101
  9. FUROSEMIDE [Concomitant]
     Indication: HYPERTENSION
     Route: 048
  10. FOLIC ACID [Concomitant]
     Indication: VITAMIN SUPPLEMENTATION
     Route: 048
  11. ZOLPIDEM TARTRATE [Concomitant]
     Indication: SLEEP DISORDER THERAPY
     Route: 048
     Dates: start: 20071201
  12. METFORMIN HCL [Concomitant]
     Indication: DIABETES MELLITUS
     Route: 048
     Dates: start: 20000101
  13. METHOTREXATE [Concomitant]
     Indication: PSORIATIC ARTHROPATHY
     Route: 048
     Dates: start: 19980101
  14. POTASSIUM CHLORIDE [Concomitant]
     Indication: MINERAL SUPPLEMENTATION
     Route: 048
  15. COMPOUNDED T-3 [Concomitant]
     Indication: TEMPERATURE REGULATION DISORDER
     Route: 048
     Dates: start: 20080515
  16. COMPOUNDED T-3 [Concomitant]
     Route: 048
     Dates: end: 20080514

REACTIONS (10)
  - ALOPECIA [None]
  - ASTHENIA [None]
  - BODY TEMPERATURE DECREASED [None]
  - DEPRESSION [None]
  - DRY SKIN [None]
  - FEELING COLD [None]
  - ILL-DEFINED DISORDER [None]
  - TEMPERATURE INTOLERANCE [None]
  - THYROID FUNCTION TEST ABNORMAL [None]
  - WEIGHT INCREASED [None]
